FAERS Safety Report 8974517 (Version 1)
Quarter: 2012Q4

REPORT INFORMATION
  Report Type: 
  Country: NL (occurrence: NL)
  Receive Date: 20121220
  Receipt Date: 20121220
  Transmission Date: 20130627
  Serious: Yes (Other)
  Sender: FDA-Public Use
  Company Number: NL-PFIZER INC-2012321202

PATIENT

DRUGS (1)
  1. TOVIAZ [Suspect]
     Indication: OVERACTIVE BLADDER
     Dosage: UNK

REACTIONS (3)
  - Cognitive disorder [Unknown]
  - Dry mouth [Unknown]
  - Constipation [Unknown]
